FAERS Safety Report 5453006-8 (Version None)
Quarter: 2007Q3

REPORT INFORMATION
  Report Type: 
  Country: None (occurrence: None)
  Receive Date: 20070914
  Receipt Date: 20070911
  Transmission Date: 20080115
  Serious: Yes (Other)
  Sender: FDA-Public Use
  Company Number: JP-ROXANE LABORATORIES, INC-2007-BP-20825RO

PATIENT
  Age: 23 Year
  Sex: Male

DRUGS (4)
  1. METHOTREXATE [Suspect]
     Indication: BONE SARCOMA
     Route: 042
     Dates: start: 19920101
  2. DOXORUBICIN HCL [Suspect]
     Indication: BONE SARCOMA
     Route: 013
     Dates: start: 19920101
  3. CISPLATIN [Suspect]
     Indication: BONE SARCOMA
     Route: 013
     Dates: start: 19920101
  4. IFOSFAMIDE [Suspect]
     Indication: BONE SARCOMA
     Route: 042
     Dates: start: 19920101

REACTIONS (1)
  - SYNOVIAL SARCOMA [None]
